FAERS Safety Report 15847070 (Version 1)
Quarter: 2019Q1

REPORT INFORMATION
  Report Type: Spontaneous
  Country: US (occurrence: US)
  Receive Date: 20190121
  Receipt Date: 20190121
  Transmission Date: 20190417
  Serious: No
  Sender: FDA-Public Use
  Company Number: US-B.I. PHARMACEUTICALS,INC./RIDGEFIELD-2019-BI-002159

PATIENT
  Age: 89 Year
  Sex: Female

DRUGS (3)
  1. ATROVENT [Suspect]
     Active Substance: IPRATROPIUM BROMIDE
     Dosage: ONE TO TWO PUFFS FOUR TIMES A DAY;  FORMULATION: INHALATION AEROSOL ADMINISTRATION CORRECT? YES
     Route: 055
     Dates: start: 20190113, end: 20190113
  2. LISINOPRIL. [Concomitant]
     Active Substance: LISINOPRIL
     Indication: HYPERTENSION
     Dosage: ON TABLET TWICE A DAY;  FORM STRENGTH: 10 MG; FORMULATION: TABLET
     Route: 048
  3. ATROVENT [Suspect]
     Active Substance: IPRATROPIUM BROMIDE
     Indication: CHRONIC OBSTRUCTIVE PULMONARY DISEASE
     Dosage: ONE TO TWO PUFFS FOUR TIMES A DAY;  FORMULATION: INHALATION AEROSOL  ADMINISTRATION CORRECT? YES
     Route: 055
     Dates: start: 20190110, end: 20190111

REACTIONS (3)
  - Pruritus [Recovered/Resolved]
  - Scratch [Recovered/Resolved]
  - Haemorrhage [Recovered/Resolved]

NARRATIVE: CASE EVENT DATE: 20190110
